FAERS Safety Report 6331006-3 (Version None)
Quarter: 2009Q3

REPORT INFORMATION
  Report Type: 
  Country: None (occurrence: None)
  Receive Date: 20090827
  Receipt Date: 20090818
  Transmission Date: 20100115
  Serious: Yes (Hospitalization)
  Sender: FDA-Public Use
  Company Number: A0784445A

PATIENT
  Age: 53 Year
  Sex: Male
  Weight: 163.6 kg

DRUGS (1)
  1. AVANDIA [Suspect]
     Indication: TYPE 2 DIABETES MELLITUS
     Dosage: 4MG PER DAY
     Route: 048
     Dates: start: 20040201, end: 20050101

REACTIONS (7)
  - AORTIC ARTERIOSCLEROSIS [None]
  - CATHETER RELATED COMPLICATION [None]
  - CEREBRAL HAEMORRHAGE [None]
  - CEREBROVASCULAR ACCIDENT [None]
  - DISEASE COMPLICATION [None]
  - EAR DISORDER [None]
  - THROMBOPHLEBITIS [None]
